FAERS Safety Report 20013539 (Version 2)
Quarter: 2021Q4

REPORT INFORMATION
  Report Type: Report from Study
  Country: US (occurrence: US)
  Receive Date: 20211029
  Receipt Date: 20211103
  Transmission Date: 20220303
  Serious: Yes (Hospitalization, Other)
  Sender: FDA-Public Use
  Company Number: US-BRISTOL-MYERS SQUIBB COMPANY-BMS-2021-113567

PATIENT
  Age: 79 Year
  Sex: Female
  Weight: 77.11 kg

DRUGS (2)
  1. APIXABAN [Suspect]
     Active Substance: APIXABAN
     Indication: Pulmonary embolism
     Dosage: 5 MILLIGRAM, BID
     Route: 048
     Dates: start: 202103
  2. APIXABAN [Suspect]
     Active Substance: APIXABAN
     Indication: Intracardiac thrombus

REACTIONS (5)
  - Cardiac failure congestive [Unknown]
  - Haemoglobin decreased [Unknown]
  - Alopecia [Unknown]
  - Hypervolaemia [Unknown]
  - Prescribed underdose [Unknown]

NARRATIVE: CASE EVENT DATE: 20210701
